FAERS Safety Report 6045690-5 (Version None)
Quarter: 2009Q1

REPORT INFORMATION
  Report Type: 
  Country: None (occurrence: None)
  Receive Date: 20090121
  Receipt Date: 20090113
  Transmission Date: 20090719
  Serious: Yes (Death)
  Sender: FDA-Public Use
  Company Number: PE-PFIZER INC-2009151441

PATIENT

DRUGS (3)
  1. ZOLOFT [Suspect]
     Indication: DEPRESSION
     Dates: start: 20071118
  2. DILTIAZEM HYDROCHLORIDE [Concomitant]
  3. IRBESARTAN [Concomitant]

REACTIONS (1)
  - MYOCARDIAL INFARCTION [None]
